FAERS Safety Report 19217662 (Version 1)
Quarter: 2021Q2

REPORT INFORMATION
  Report Type: Spontaneous
  Country: US (occurrence: US)
  Receive Date: 20210505
  Receipt Date: 20210505
  Transmission Date: 20210717
  Serious: Yes (Other)
  Sender: FDA-Public Use
  Company Number: None

PATIENT
  Age: 59 Year
  Sex: Female
  Weight: 101.5 kg

DRUGS (1)
  1. CASIRIVIMAB 1,200 MG, IMDEVIMAB 1,200 MG IN SODIUM CHLORIDE 0.9 % 250 [Suspect]
     Active Substance: CASIRIVIMAB\IMDEVIMAB
     Indication: COVID-19
     Dosage: ?          OTHER FREQUENCY:ONCE;?
     Route: 042

REACTIONS (6)
  - Hypersensitivity [None]
  - Wheezing [None]
  - Speech disorder [None]
  - Infusion related reaction [None]
  - Pharyngeal swelling [None]
  - Rash [None]

NARRATIVE: CASE EVENT DATE: 20210430
